FAERS Safety Report 23566481 (Version 1)
Quarter: 2024Q1

REPORT INFORMATION
  Report Type: Spontaneous
  Country: US (occurrence: US)
  Receive Date: 20240226
  Receipt Date: 20240226
  Transmission Date: 20240410
  Serious: No
  Sender: FDA-Public Use
  Company Number: US-AMNEAL PHARMACEUTICALS-2023-AMRX-00217

PATIENT
  Sex: Female

DRUGS (2)
  1. RYTARY [Suspect]
     Active Substance: CARBIDOPA\LEVODOPA
     Indication: Parkinson^s disease
     Dosage: UNK
     Route: 048
  2. RYTARY [Suspect]
     Active Substance: CARBIDOPA\LEVODOPA
     Dosage: (195/145 MG) 2 CAPSULES, 3X/DAY
     Route: 065
     Dates: start: 2018

REACTIONS (4)
  - Gait disturbance [Unknown]
  - Speech disorder [Unknown]
  - Unevaluable event [Unknown]
  - Insomnia [Unknown]
